FAERS Safety Report 12919670 (Version 1)
Quarter: 2016Q4

REPORT INFORMATION
  Report Type: Spontaneous
  Country: US (occurrence: US)
  Receive Date: 20161103
  Receipt Date: 20161103
  Transmission Date: 20170207
  Serious: Yes (Hospitalization)
  Sender: FDA-Public Use
  Company Number: None

PATIENT
  Age: 19 Year
  Sex: Female

DRUGS (1)
  1. MAKENA [Suspect]
     Active Substance: HYDROXYPROGESTERONE CAPROATE
     Indication: PREMATURE BABY
     Route: 030
     Dates: start: 20161001

REACTIONS (4)
  - Vomiting [None]
  - Nausea [None]
  - Headache [None]
  - Loss of consciousness [None]

NARRATIVE: CASE EVENT DATE: 20161015
